FAERS Safety Report 8035838-5 (Version None)
Quarter: 2012Q1

REPORT INFORMATION
  Report Type: 
  Country: None (occurrence: None)
  Receive Date: 20120111
  Receipt Date: 20120111
  Transmission Date: 20120608
  Serious: Yes (Hospitalization)
  Sender: FDA-Public Use
  Company Number: None

PATIENT
  Sex: Female
  Weight: 59.6 kg

DRUGS (2)
  1. MOXIFLOXACIN [Suspect]
     Indication: PNEUMONIA
     Dosage: 400MG
     Route: 042
     Dates: start: 20120103, end: 20120107
  2. ONDANSETRON [Concomitant]
     Indication: NAUSEA
     Dosage: 4MG
     Route: 042
     Dates: start: 20111228, end: 20120108

REACTIONS (4)
  - NAUSEA [None]
  - VENTRICULAR TACHYCARDIA [None]
  - ELECTROCARDIOGRAM QT PROLONGED [None]
  - VENTRICULAR FLUTTER [None]
